FAERS Safety Report 8677501 (Version 7)
Quarter: 2014Q4

REPORT INFORMATION
  Report Type: Spontaneous
  Country: US (occurrence: US)
  Receive Date: 20120723
  Receipt Date: 20141008
  Transmission Date: 20150529
  Serious: Yes (Life-Threatening, Congenital Anomaly, Other)
  Sender: FDA-Public Use
  Company Number: US-PFIZER INC-2012173613

PATIENT
  Sex: Female
  Weight: 3.62 kg

DRUGS (19)
  1. AMBIEN [Concomitant]
     Active Substance: ZOLPIDEM TARTRATE
     Dosage: 10 MG, UNK
     Route: 064
     Dates: start: 20091117
  2. PRENATAL PLUS [Concomitant]
     Active Substance: .ALPHA.-TOCOPHEROL ACETATE, DL-\.BETA.-CAROTENE\ASCORBIC ACID\CALCIUM CARBONATE\CHOLECALCIFEROL\CUPRIC OXIDE\CYANOCOBALAMIN\FERROUS FUMARATE\FOLIC ACID\NIACINAMIDE\PYRIDOXINE HYDROCHLORIDE\RIBOFLAVIN\THIAMINE MONONITRATE\VITAMIN A ACETATE\ZINC OXIDE
     Dosage: 1 DF, 1X/DAY
     Route: 064
     Dates: start: 20090330
  3. MACROBID [Concomitant]
     Active Substance: NITROFURANTOIN\NITROFURANTOIN MONOHYDRATE
     Dosage: 100 MG, 2X/DAY
     Route: 064
     Dates: start: 20090508
  4. ZOLOFT [Suspect]
     Active Substance: SERTRALINE HYDROCHLORIDE
     Dosage: 50 MG, 1X/DAY
     Route: 064
     Dates: start: 20090730, end: 20091116
  5. FLAGYL [Concomitant]
     Active Substance: METRONIDAZOLE\METRONIDAZOLE HYDROCHLORIDE
     Dosage: 500 MG, 2X/DAY
     Route: 064
     Dates: start: 20090603
  6. TRETINOIN. [Concomitant]
     Active Substance: TRETINOIN
     Dosage: 0.1 %, 1X/DAY (AT BED TIME)
     Route: 064
     Dates: start: 20090313
  7. RETIN-A [Concomitant]
     Active Substance: TRETINOIN
     Dosage: 0.1 % APPLIED TO FACE AT BEDTIME
     Route: 064
     Dates: start: 20090313
  8. DORYX [Concomitant]
     Active Substance: DOXYCYCLINE HYCLATE
     Dosage: 100 MG, 2X/DAY
     Route: 064
     Dates: start: 20090313
  9. STADOL [Concomitant]
     Active Substance: BUTORPHANOL TARTRATE
     Dosage: 2 MG, UNK
     Route: 064
     Dates: start: 20091117
  10. PHENERGAN [Concomitant]
     Active Substance: PROMETHAZINE HYDROCHLORIDE
     Dosage: 25 MG, UNK
     Route: 064
     Dates: start: 20091117
  11. ZOLOFT [Suspect]
     Active Substance: SERTRALINE HYDROCHLORIDE
     Dosage: 25 MG, 1X/DAY
     Route: 064
     Dates: start: 20090702
  12. EFFEXOR XR [Concomitant]
     Active Substance: VENLAFAXINE HYDROCHLORIDE
     Dosage: 37.5 MG, 1X/DAY
     Route: 064
     Dates: start: 20090223
  13. DOXYCYCLINE. [Concomitant]
     Active Substance: DOXYCYCLINE
     Dosage: 1 DF, 2X/DAY
     Route: 064
     Dates: start: 20090313
  14. PRENATAL [Concomitant]
     Active Substance: VITAMINS
     Dosage: 27-0.8 MG ONCE DAILY
     Route: 064
     Dates: start: 20090330
  15. PRENATAL VITAMINS [Concomitant]
     Active Substance: VITAMINS
     Dosage: UNK
     Route: 064
  16. METRONIDAZOLE. [Concomitant]
     Active Substance: METRONIDAZOLE
     Dosage: 500 MG, 2X/DAY
     Route: 064
     Dates: start: 20090603
  17. ZOLOFT [Suspect]
     Active Substance: SERTRALINE HYDROCHLORIDE
     Dosage: 25 MG, 1X/DAY
     Route: 064
     Dates: start: 20091104
  18. ERYTHROMYCIN. [Concomitant]
     Active Substance: ERYTHROMYCIN
     Dosage: 500 MG, 2X/DAY
     Route: 064
     Dates: start: 20090403
  19. AZELEX [Concomitant]
     Active Substance: AZELAIC ACID
     Dosage: 20%, APPLY 2X/DAY
     Route: 064
     Dates: start: 20090403

REACTIONS (2)
  - Heart disease congenital [Not Recovered/Not Resolved]
  - Maternal exposure timing unspecified [Not Recovered/Not Resolved]
